FAERS Safety Report 7804992-X (Version None)
Quarter: 2011Q4

REPORT INFORMATION
  Report Type: 
  Country: None (occurrence: None)
  Receive Date: 20111010
  Receipt Date: 20111005
  Transmission Date: 20120403
  Serious: Yes (Hospitalization)
  Sender: FDA-Public Use
  Company Number: US-GLAXOSMITHKLINE-A0766641A

PATIENT
  Age: 57 Year
  Sex: Female
  Weight: 82.3 kg

DRUGS (5)
  1. METFORMIN HYDROCHLORIDE [Concomitant]
  2. AVANDAMET [Suspect]
     Indication: DIABETES MELLITUS
     Route: 048
     Dates: start: 20030914, end: 20070101
  3. TRICOR [Concomitant]
  4. CRESTOR [Concomitant]
  5. AVANDIA [Suspect]
     Indication: TYPE 2 DIABETES MELLITUS
     Dosage: 4MG TWICE PER DAY
     Route: 048
     Dates: start: 20040107, end: 20070514

REACTIONS (8)
  - DEPRESSION [None]
  - ABDOMINAL PAIN UPPER [None]
  - HYPERTENSION [None]
  - STENT PLACEMENT [None]
  - RENAL FAILURE CHRONIC [None]
  - CEREBROVASCULAR DISORDER [None]
  - SWELLING [None]
  - MYOCARDIAL INFARCTION [None]
